FAERS Safety Report 4274130-1 (Version None)
Quarter: 2004Q1

REPORT INFORMATION
  Report Type: 
  Country: None (occurrence: None)
  Receive Date: 20040120
  Receipt Date: 20020927
  Transmission Date: 20041129
  Serious: Yes (Hospitalization)
  Sender: FDA-Public Use
  Company Number: US-BRISTOL-MYERS SQUIBB COMPANY-12055216

PATIENT
  Age: 62 Year
  Sex: Male

DRUGS (11)
  1. ATORVASTATIN [Suspect]
     Dosage: THERAPY INTERRUPTED; LAST DOSE PRIOR TO EVENT: 31-AUG-2002
     Route: 048
     Dates: start: 20011206
  2. GATIFLOXACIN [Suspect]
     Dosage: THERAPY INTERRUPTED; LAST DOSE PRIOR TO EVENT: 31-AUG-2002
     Route: 048
     Dates: start: 20011220
  3. COUMADIN [Suspect]
     Dosage: STOPPED ON 31-AUG-2002 AND RESTARTED ON 02-SEP-2002.
     Dates: start: 20020829
  4. PLAVIX [Suspect]
     Dates: start: 20011101
  5. LOVENOX [Suspect]
     Dates: start: 20020829, end: 20020901
  6. ASPIRIN [Suspect]
     Dates: start: 20011101
  7. ADVAIR DISKUS 250/50 [Concomitant]
     Dates: start: 20011101
  8. FAMOTIDINE [Concomitant]
     Dates: start: 20011101
  9. ALUPENT [Concomitant]
     Dosage: DOSAGE FORM: PUFFS
     Dates: start: 20011101
  10. ALLOPURINOL [Concomitant]
     Dates: start: 20020718
  11. OXYCODONE HCL [Concomitant]
     Dates: start: 20020829

REACTIONS (2)
  - COMPARTMENT SYNDROME [None]
  - DEEP VEIN THROMBOSIS [None]
